FAERS Safety Report 25906897 (Version 1)
Quarter: 2025Q4

REPORT INFORMATION
  Report Type: Spontaneous
  Country: US (occurrence: None)
  Receive Date: 20251009
  Receipt Date: 20251009
  Transmission Date: 20260118
  Serious: Yes (Hospitalization)
  Sender: FDA-CTU
  Company Number: None

PATIENT
  Age: 5 Year
  Sex: Male
  Weight: 24.3 kg

DRUGS (1)
  1. RIXUBIS [Suspect]
     Active Substance: COAGULATION FACTOR IX RECOMBINANT HUMAN
     Indication: Factor IX deficiency
     Dosage: 1000 IU INTRNATIONAL UNIT(S) AS NEEDED INTRAVENOUS
     Route: 042
     Dates: start: 20240712

REACTIONS (2)
  - Haemorrhage [None]
  - Upper limb fracture [None]

NARRATIVE: CASE EVENT DATE: 20250803
